FAERS Safety Report 4881252-0 (Version None)
Quarter: 2005Q4

REPORT INFORMATION
  Report Type: 
  Country: None (occurrence: None)
  Receive Date: 20051212
  Receipt Date: 20051017
  Transmission Date: 20060501
  Serious: Yes (Hospitalization)
  Sender: FDA-Public Use
  Company Number: 2005-02154

PATIENT
  Age: 71 Year
  Sex: Male
  Weight: 60.9 kg

DRUGS (2)
  1. VELCADE [Suspect]
     Indication: MULTIPLE MYELOMA
     Dosage: 4.60 MG, 2/WEEK, INTRAVENOUS
     Route: 042
     Dates: start: 20050726, end: 20050729
  2. DOXIL [Suspect]
     Indication: MULTIPLE MYELOMA
     Dosage: 52.00 MG, Q3WEEKS, INTRAVENOUS
     Route: 042
     Dates: start: 20050729

REACTIONS (6)
  - ATRIAL FIBRILLATION [None]
  - CLOSTRIDIAL INFECTION [None]
  - DEHYDRATION [None]
  - HYPONATRAEMIA [None]
  - HYPOTENSION [None]
  - NAUSEA [None]
